FAERS Safety Report 6759081-2 (Version None)
Quarter: 2010Q2

REPORT INFORMATION
  Report Type: 
  Country: None (occurrence: None)
  Receive Date: 20100607
  Receipt Date: 20100525
  Transmission Date: 20101027
  Serious: Yes (Hospitalization)
  Sender: FDA-Public Use
  Company Number: US-GENZYME-MOZO-1000334

PATIENT
  Age: 65 Year
  Sex: Female
  Weight: 51 kg

DRUGS (19)
  1. MOZOBIL [Suspect]
     Indication: HAEMATOPOIETIC STEM CELL MOBILISATION
     Dosage: 13968 MCG, QD
     Dates: start: 20091228, end: 20091231
  2. MOZOBIL [Suspect]
     Indication: ACUTE MYELOID LEUKAEMIA
  3. NEUPOGEN [Concomitant]
     Indication: HAEMATOPOIETIC STEM CELL MOBILISATION
     Dosage: 600 MCG, QD
     Dates: start: 20091226, end: 20091231
  4. FLUDARABINE [Concomitant]
     Indication: DRUG USE FOR UNKNOWN INDICATION
     Dosage: 64 MG, QD
     Dates: start: 20091229, end: 20100101
  5. BUSULFEX [Concomitant]
     Indication: DRUG USE FOR UNKNOWN INDICATION
     Dosage: 209 MG, QD
     Dates: start: 20091229, end: 20100101
  6. TRIAMCINOLONE [Concomitant]
     Indication: DRUG USE FOR UNKNOWN INDICATION
  7. ZOFRAN [Concomitant]
     Indication: DRUG USE FOR UNKNOWN INDICATION
  8. BACTRIM [Concomitant]
     Indication: DRUG USE FOR UNKNOWN INDICATION
  9. CALCIUM CARBONATE [Concomitant]
     Indication: DRUG USE FOR UNKNOWN INDICATION
  10. FOLIC ACID [Concomitant]
     Indication: DRUG USE FOR UNKNOWN INDICATION
  11. LEVAQUIN [Concomitant]
     Indication: DRUG USE FOR UNKNOWN INDICATION
  12. MAGNESIUM OXIDE [Concomitant]
     Indication: DRUG USE FOR UNKNOWN INDICATION
  13. NORVASC [Concomitant]
     Indication: DRUG USE FOR UNKNOWN INDICATION
  14. PROGRAF [Concomitant]
     Indication: DRUG USE FOR UNKNOWN INDICATION
  15. PROTONIX [Concomitant]
     Indication: DRUG USE FOR UNKNOWN INDICATION
  16. VAGINAL LUBRICANT [Concomitant]
     Indication: DRUG USE FOR UNKNOWN INDICATION
  17. VALTREX [Concomitant]
     Indication: DRUG USE FOR UNKNOWN INDICATION
  18. VITAMIN D [Concomitant]
     Indication: DRUG USE FOR UNKNOWN INDICATION
  19. ZYRTEC [Concomitant]
     Indication: DRUG USE FOR UNKNOWN INDICATION

REACTIONS (3)
  - FALL [None]
  - MUSCULAR WEAKNESS [None]
  - PYREXIA [None]
